FAERS Safety Report 10150365 (Version 1)
Quarter: 2014Q2

REPORT INFORMATION
  Report Type: Spontaneous
  Country: EG (occurrence: EG)
  Receive Date: 20140502
  Receipt Date: 20140502
  Transmission Date: 20141212
  Serious: Yes (Hospitalization)
  Sender: FDA-Public Use
  Company Number: PHHY2014EG051118

PATIENT
  Age: 65 Year
  Sex: Female

DRUGS (1)
  1. VOLTAREN [Suspect]
     Dosage: UNK UKN, UNK

REACTIONS (7)
  - Bone marrow failure [Recovered/Resolved]
  - Eosinophilia [Unknown]
  - Platelet count decreased [Recovered/Resolved]
  - Marrow hyperplasia [Unknown]
  - Excessive granulation tissue [Unknown]
  - Platelet disorder [Unknown]
  - Purpura [Recovered/Resolved]
